FAERS Safety Report 17076325 (Version 1)
Quarter: 2019Q4

REPORT INFORMATION
  Report Type: Spontaneous
  Country: US (occurrence: US)
  Receive Date: 20191126
  Receipt Date: 20191126
  Transmission Date: 20200122
  Serious: No
  Sender: FDA-Public Use
  Company Number: US-BAYER-2019-211232

PATIENT
  Age: 73 Year
  Sex: Female
  Weight: 71 kg

DRUGS (1)
  1. MIRALAX [Suspect]
     Active Substance: POLYETHYLENE GLYCOL 3350
     Indication: CONSTIPATION
     Dosage: 17 G, BID
     Route: 048
     Dates: start: 20191120

REACTIONS (3)
  - Malaise [Unknown]
  - Incorrect dose administered [Unknown]
  - Nausea [Unknown]

NARRATIVE: CASE EVENT DATE: 20191120
